FAERS Safety Report 4590476-1 (Version None)
Quarter: 2005Q1

REPORT INFORMATION
  Report Type: 
  Country: None (occurrence: None)
  Receive Date: 20050224
  Receipt Date: 20050126
  Transmission Date: 20050727
  Serious: Yes (Other)
  Sender: FDA-Public Use
  Company Number: PHEH2005US01358

PATIENT
  Age: 72 Year
  Sex: Male

DRUGS (8)
  1. GLEEVEC [Suspect]
     Indication: CHRONIC MYELOID LEUKAEMIA
     Dosage: 400 MG, QD
     Route: 048
     Dates: start: 20050124, end: 20050101
  2. GLEEVEC [Suspect]
     Dosage: 200 MG, QD
     Route: 048
     Dates: start: 20050214
  3. ATENOLOL [Concomitant]
  4. LIPITOR [Concomitant]
  5. ZOLOFT [Concomitant]
  6. OXYCONTIN [Suspect]
     Indication: MYALGIA
     Dosage: UNK, UNK
     Route: 048
     Dates: start: 20050101
  7. ATIVAN [Suspect]
     Indication: INSOMNIA
     Dosage: UNK, UNK
     Route: 048
     Dates: start: 20050101
  8. DIGITEK [Concomitant]
     Route: 048

REACTIONS (6)
  - ARTHRALGIA [None]
  - BACK PAIN [None]
  - HALLUCINATION [None]
  - INSOMNIA [None]
  - MUSCLE SPASMS [None]
  - MYALGIA [None]
